FAERS Safety Report 24867287 (Version 1)
Quarter: 2025Q1

REPORT INFORMATION
  Report Type: Spontaneous
  Country: US (occurrence: US)
  Receive Date: 20250121
  Receipt Date: 20250121
  Transmission Date: 20250409
  Serious: No
  Sender: PERRIGO
  Company Number: US-PERRIGO-24US007813

PATIENT
  Sex: Male

DRUGS (1)
  1. NICOTINE POLACRILEX [Suspect]
     Active Substance: NICOTINE
     Indication: Routine health maintenance
     Route: 002
     Dates: start: 20240819, end: 20240819

REACTIONS (3)
  - Vomiting [Recovered/Resolved]
  - Product use in unapproved indication [Unknown]
  - Expired product administered [Unknown]

NARRATIVE: CASE EVENT DATE: 20240819
